FAERS Safety Report 4984296-3 (Version None)
Quarter: 2006Q2

REPORT INFORMATION
  Report Type: 
  Country: None (occurrence: None)
  Receive Date: 20060420
  Receipt Date: 20060407
  Transmission Date: 20061013
  Serious: Yes (Life-Threatening, Hospitalization, Other)
  Sender: FDA-Public Use
  Company Number: IE-2006-007317

PATIENT
  Age: 63 Year
  Sex: Female

DRUGS (10)
  1. ULTRAVIST 370 [Suspect]
     Indication: ANGIOGRAM
     Dosage: 100 ML, 1 DOSE, INTRA-ARTERIAL
     Route: 014
     Dates: start: 20060323, end: 20060323
  2. PIRITON (CHLORPHENAMINE MALEATE) [Concomitant]
  3. CORTICOSTEROIDS NOS (CORTICOSTEROIDS NOS) [Concomitant]
  4. ADRENALINE [Concomitant]
  5. CALCICHEW [Concomitant]
  6. DIAMICRON (GLICLAZIDE) [Concomitant]
  7. CARDICOR (BISOPROLOL) [Concomitant]
  8. INEGY (SIMVASTATIN) [Concomitant]
  9. ASPIRIN [Concomitant]
  10. GLUCOPHAGE [Concomitant]

REACTIONS (3)
  - ACUTE MYOCARDIAL INFARCTION [None]
  - ANAPHYLACTIC REACTION [None]
  - BLOOD PRESSURE DECREASED [None]
